FAERS Safety Report 8881004 (Version 1)
Quarter: 2012Q4

REPORT INFORMATION
  Report Type: 
  Country: US (occurrence: US)
  Receive Date: 20121101
  Receipt Date: 20121101
  Transmission Date: 20130627
  Serious: No
  Sender: FDA-Public Use
  Company Number: US-BAYER-2012-109506

PATIENT
  Age: 84 Year
  Sex: Female
  Weight: 58.96 kg

DRUGS (15)
  1. ALEVE CAPLET/TABLET,MIDOL EXTENDED RELIEF CAPLET [Suspect]
     Indication: ARTHRITIS
     Dosage: 1 TAB, BID
     Route: 048
     Dates: start: 2008
  2. BAYER ASPIRIN REGIMEN ADULT LOW STRENGTH [Suspect]
     Indication: MYOCARDIAL INFARCT PROPHYLAXIS
  3. POTASSIUM [Concomitant]
  4. ALBUTEROL [Concomitant]
  5. PULMICORT [Concomitant]
  6. NEMBUTAL [Concomitant]
  7. PEPCID [Concomitant]
     Dosage: UNK UNK, BID
  8. SYNTHROID [Concomitant]
  9. DITROPAN [Concomitant]
  10. LASIX [Concomitant]
  11. SINGULAIR [Concomitant]
  12. CALCIUM [Concomitant]
  13. VITAMINS NOS [Concomitant]
  14. DIGOXIN [Concomitant]
  15. PRADAXA [Concomitant]

REACTIONS (2)
  - Dyspnoea [Not Recovered/Not Resolved]
  - Weight fluctuation [None]
